FAERS Safety Report 6936995-1 (Version None)
Quarter: 2010Q3

REPORT INFORMATION
  Report Type: 
  Country: None (occurrence: None)
  Receive Date: 20100823
  Receipt Date: 20100809
  Transmission Date: 20110219
  Serious: Yes (Hospitalization)
  Sender: FDA-Public Use
  Company Number: PHHY2010MX53067

PATIENT
  Sex: Female
  Weight: 60 kg

DRUGS (2)
  1. GALVUS [Suspect]
     Indication: DIABETES MELLITUS
     Dosage: 1 TABLET, UNK
     Dates: start: 20100616
  2. DIOVAN HCT [Suspect]
     Indication: HYPERTENSION
     Dosage: 1/2 TABLET (160/12.5 MG ) PER DAY
     Dates: start: 20100601

REACTIONS (2)
  - GALLBLADDER DISORDER [None]
  - GALLBLADDER OPERATION [None]
